FAERS Safety Report 5906671-2 (Version None)
Quarter: 2008Q3

REPORT INFORMATION
  Report Type: 
  Country: None (occurrence: None)
  Receive Date: 20080930
  Receipt Date: 20080919
  Transmission Date: 20090109
  Serious: Yes (Life-Threatening)
  Sender: FDA-Public Use
  Company Number: 004549

PATIENT
  Age: 31 Year
  Sex: Female

DRUGS (8)
  1. BUSULFEX [Suspect]
     Indication: STEM CELL TRANSPLANT
     Dosage: SEE IMAGE
     Route: 042
     Dates: start: 20070513, end: 20070513
  2. BUSULFEX [Suspect]
     Indication: STEM CELL TRANSPLANT
     Dosage: SEE IMAGE
     Route: 042
     Dates: start: 20070514, end: 20070516
  3. BUSULFEX [Suspect]
     Indication: STEM CELL TRANSPLANT
     Dosage: SEE IMAGE
     Route: 042
     Dates: start: 20070517, end: 20070517
  4. FLUDARABINE PHOSPHATE [Concomitant]
  5. VALPROATE SODIUM [Concomitant]
  6. LENOGRASTIM (LENOGRASTIM) [Concomitant]
  7. METHOTREXATE [Concomitant]
  8. TACROLIMUS [Concomitant]

REACTIONS (5)
  - ACUTE LYMPHOCYTIC LEUKAEMIA RECURRENT [None]
  - BONE MARROW TRANSPLANT [None]
  - DIARRHOEA [None]
  - NAUSEA [None]
  - STOMATITIS [None]
